FAERS Safety Report 10466704 (Version 1)
Quarter: 2014Q2

REPORT INFORMATION
  Report Type: Spontaneous
  Country: US (occurrence: None)
  Receive Date: 20140605
  Receipt Date: 20140605
  Transmission Date: 20141212
  Serious: No
  Sender: FDA-Public Use
  Company Number: US-145519

PATIENT
  Age: 51 Year
  Sex: Male
  Weight: 67.7 kg

DRUGS (2)
  1. BOTULISM ANTITOXIN [Suspect]
     Indication: BOTULISM
     Dates: start: 20140125, end: 20140125
  2. DIPRIVAN [Concomitant]

REACTIONS (1)
  - Blood pressure increased [None]
